FAERS Safety Report 6856744-5 (Version None)
Quarter: 2010Q3

REPORT INFORMATION
  Report Type: 
  Country: None (occurrence: None)
  Receive Date: 20100719
  Receipt Date: 20100707
  Transmission Date: 20110219
  Serious: Yes (Life-Threatening)
  Sender: FDA-Public Use
  Company Number: DK-WYE-G06374810

PATIENT
  Sex: Male
  Weight: 91 kg

DRUGS (1)
  1. RELISTOR [Suspect]
     Indication: CONSTIPATION
     Dosage: 12 MG EVERY
     Route: 042
     Dates: start: 20100629, end: 20100629

REACTIONS (2)
  - LARGE INTESTINE PERFORATION [None]
  - SEPTIC SHOCK [None]
